FAERS Safety Report 4780088-9 (Version None)
Quarter: 2005Q3

REPORT INFORMATION
  Report Type: 
  Country: None (occurrence: None)
  Receive Date: 20050914
  Receipt Date: 20050427
  Transmission Date: 20060218
  Serious: Yes (Death)
  Sender: FDA-Public Use
  Company Number: 163-20785-05040557

PATIENT
  Age: 73 Year
  Sex: Male

DRUGS (7)
  1. THALOMID [Suspect]
     Indication: MULTIPLE MYELOMA
     Dosage: ORAL
     Route: 048
     Dates: start: 20010917, end: 20030609
  2. MELPHALAN (MELPHALAN) [Suspect]
     Indication: MULTIPLE MYELOMA
     Dosage: 200 MG
     Dates: start: 20020211, end: 20020211
  3. DEXAMETHASONE [Suspect]
     Indication: MULTIPLE MYELOMA
     Dates: end: 20030307
  4. CISPLATIN [Suspect]
     Indication: MULTIPLE MYELOMA
     Dates: end: 20030307
  5. ADRIAMYCIN PFS [Suspect]
     Indication: MULTIPLE MYELOMA
     Dates: end: 20030307
  6. CYCLOPHOSPHAMIDE [Suspect]
     Indication: MULTIPLE MYELOMA
     Dates: end: 20030307
  7. ETOPOSIDE [Suspect]
     Indication: MULTIPLE MYELOMA
     Dates: end: 20030307

REACTIONS (1)
  - DISEASE PROGRESSION [None]
